FAERS Safety Report 12370657 (Version 2)
Quarter: 2016Q3

REPORT INFORMATION
  Report Type: Report from Study
  Country: US (occurrence: US)
  Receive Date: 20160516
  Receipt Date: 20160722
  Transmission Date: 20161109
  Serious: No
  Sender: FDA-Public Use
  Company Number: US-AMGEN-USASL2016060238

PATIENT
  Age: 26 Year
  Sex: Male

DRUGS (4)
  1. METHOTREXATE. [Concomitant]
     Active Substance: METHOTREXATE
     Dosage: UNK
     Route: 065
  2. ENBREL [Suspect]
     Active Substance: ETANERCEPT
     Indication: PSORIASIS
     Dosage: UNK UNK, QWK
     Route: 065
     Dates: start: 20160407
  3. ENBREL [Suspect]
     Active Substance: ETANERCEPT
     Indication: PSORIATIC ARTHROPATHY
  4. INH [Concomitant]
     Active Substance: ISONIAZID
     Dosage: UNK
     Route: 065

REACTIONS (7)
  - Psoriasis [Unknown]
  - Pain in extremity [Not Recovered/Not Resolved]
  - Joint swelling [Recovering/Resolving]
  - Musculoskeletal stiffness [Unknown]
  - Plantar fasciitis [Unknown]
  - Drug effect incomplete [Unknown]
  - Arthralgia [Not Recovered/Not Resolved]

NARRATIVE: CASE EVENT DATE: 2016
